FAERS Safety Report 4352220-2 (Version None)
Quarter: 2004Q2

REPORT INFORMATION
  Report Type: 
  Country: None (occurrence: None)
  Receive Date: 20040504
  Receipt Date: 20040413
  Transmission Date: 20050107
  Serious: Yes (Hospitalization)
  Sender: FDA-Public Use
  Company Number: PHNR2004AU00885

PATIENT
  Sex: Male

DRUGS (2)
  1. ISMELIN [Suspect]
     Indication: CRUSH INJURY
     Dosage: 20 MG, UNK
     Route: 042
  2. ACCUPRIL [Concomitant]
     Route: 048

REACTIONS (2)
  - ACCIDENTAL OVERDOSE [None]
  - HYPERTENSION [None]
